FAERS Safety Report 7413266-0 (Version None)
Quarter: 2011Q2

REPORT INFORMATION
  Report Type: 
  Country: None (occurrence: None)
  Receive Date: 20110413
  Receipt Date: 20110407
  Transmission Date: 20111010
  Serious: Yes (Death)
  Sender: FDA-Public Use
  Company Number: MU-PFIZER INC-2011077748

PATIENT
  Age: 41 Year
  Sex: Male

DRUGS (1)
  1. SILDENAFIL CITRATE [Suspect]
     Dosage: 100 MG, UNK

REACTIONS (1)
  - BRAIN OEDEMA [None]
